FAERS Safety Report 17756102 (Version 1)
Quarter: 2020Q2

REPORT INFORMATION
  Report Type: Spontaneous
  Country: US (occurrence: US)
  Receive Date: 20200507
  Receipt Date: 20200507
  Transmission Date: 20200714
  Serious: Yes (Hospitalization)
  Sender: FDA-Public Use
  Company Number: None

PATIENT
  Age: 53 Year
  Sex: Male
  Weight: 69.2 kg

DRUGS (2)
  1. TAXOTERE [Suspect]
     Active Substance: DOCETAXEL
     Dates: end: 20200408
  2. CARBOPLATIN. [Suspect]
     Active Substance: CARBOPLATIN
     Dates: end: 20200408

REACTIONS (6)
  - Haemorrhage [None]
  - Constipation [None]
  - Complication associated with device [None]
  - Abdominal pain [None]
  - Urinary tract stoma complication [None]
  - Femur fracture [None]

NARRATIVE: CASE EVENT DATE: 20200418
